FAERS Safety Report 9860958 (Version 1)
Quarter: 2014Q1

REPORT INFORMATION
  Report Type: Spontaneous
  Country: None (occurrence: US)
  Receive Date: 20140202
  Receipt Date: 20140202
  Transmission Date: 20141002
  Serious: No
  Sender: FDA-Public Use
  Company Number: US-ALLERGAN-1302386US

PATIENT
  Age: 67 Year
  Sex: Female

DRUGS (2)
  1. BOTOX COSMETIC [Suspect]
     Indication: PRODUCT USED FOR UNKNOWN INDICATION
     Dosage: UNK
     Dates: start: 2009, end: 2009
  2. BOTOX COSMETIC [Suspect]
     Dosage: UNK, SINGLE
     Dates: start: 20121213, end: 20121213

REACTIONS (7)
  - Swelling face [Unknown]
  - Hypoaesthesia [Not Recovered/Not Resolved]
  - Swelling face [Not Recovered/Not Resolved]
  - Brow ptosis [Recovering/Resolving]
  - Facial paresis [Recovering/Resolving]
  - Hypoaesthesia [Recovering/Resolving]
  - Sensory disturbance [Unknown]
